FAERS Safety Report 5164297-5 (Version None)
Quarter: 2006Q4

REPORT INFORMATION
  Report Type: 
  Country: None (occurrence: None)
  Receive Date: 20061129
  Receipt Date: 20061129
  Transmission Date: 20070319
  Serious: Yes (Hospitalization)
  Sender: FDA-Public Use
  Company Number: None

PATIENT
  Sex: Male
  Weight: 89 kg

DRUGS (9)
  1. PIPERACILLIN AND TAZOBACTAM [Suspect]
     Indication: CELLULITIS
     Dosage: 3.375 GRAMS Q6H IV DRIP
     Route: 041
     Dates: start: 20061018, end: 20061111
  2. ACETAMINOPHEN [Concomitant]
  3. ASPIRIN [Concomitant]
  4. CHOLESTYRAMINE [Concomitant]
  5. FLUVOXAMINE MALEATE [Concomitant]
  6. HYDROCHLOROTHIAZIDE [Concomitant]
  7. INSULIN,NOVOLIN [Concomitant]
  8. LISINOPRIL [Concomitant]
  9. LOPERAMIDE HCL [Concomitant]

REACTIONS (1)
  - NO ADVERSE EFFECT [None]
